FAERS Safety Report 5981517-5 (Version None)
Quarter: 2008Q4

REPORT INFORMATION
  Report Type: 
  Country: None (occurrence: None)
  Receive Date: 20081202
  Receipt Date: 20081117
  Transmission Date: 20090506
  Serious: Yes (Hospitalization)
  Sender: FDA-Public Use
  Company Number: KV200800285

PATIENT
  Age: 35 Year
  Sex: Male

DRUGS (4)
  1. PROPAFENONE HYDROCHLORIDE [Suspect]
     Indication: ATRIAL FIBRILLATION
     Dosage: 150 MG, TID, ORAL
     Route: 048
     Dates: start: 20010101
  2. LIPITOR [Concomitant]
  3. FLAX SEED [Concomitant]
  4. ASPIRIN [Concomitant]

REACTIONS (5)
  - ATRIAL FIBRILLATION [None]
  - CONDITION AGGRAVATED [None]
  - HAEMATOCRIT INCREASED [None]
  - PRODUCT QUALITY ISSUE [None]
  - VENTRICULAR EXTRASYSTOLES [None]
